FAERS Safety Report 25554216 (Version 1)
Quarter: 2025Q3

REPORT INFORMATION
  Report Type: Spontaneous
  Country: CN (occurrence: CN)
  Receive Date: 20250715
  Receipt Date: 20250715
  Transmission Date: 20251021
  Serious: Yes (Other)
  Sender: PFIZER
  Company Number: CN-PFIZER INC-PV202500083734

PATIENT
  Age: 17 Year
  Sex: Male
  Weight: 47.5 kg

DRUGS (5)
  1. ZYVOX [Suspect]
     Active Substance: LINEZOLID
     Indication: Antibiotic therapy
     Dosage: 0.6 G, 1X/DAY
     Route: 048
     Dates: start: 20250611, end: 20250705
  2. LINEZOLID [Suspect]
     Active Substance: LINEZOLID
     Indication: Pulmonary tuberculosis
     Dosage: 0.6 G, 1X/DAY
     Route: 041
     Dates: start: 20250705, end: 20250711
  3. ISONIAZID [Concomitant]
     Active Substance: ISONIAZID
     Dosage: 0.3 G, 1X/DAY
     Route: 048
     Dates: start: 202506
  4. RIFAMPIN [Concomitant]
     Active Substance: RIFAMPIN
     Dosage: 0.45 G, 1X/DAY (QN)
     Route: 048
     Dates: start: 202506
  5. PYRAZINAMIDE [Concomitant]
     Active Substance: PYRAZINAMIDE
     Dosage: 0.75 G, 2X/DAY
     Route: 048
     Dates: start: 202506

REACTIONS (2)
  - Hypoaesthesia [Unknown]
  - Off label use [Unknown]

NARRATIVE: CASE EVENT DATE: 20250611
